FAERS Safety Report 8270279-7 (Version None)
Quarter: 2012Q2

REPORT INFORMATION
  Report Type: 
  Country: None (occurrence: None)
  Receive Date: 20120410
  Receipt Date: 20120330
  Transmission Date: 20120825
  Serious: Yes (Life-Threatening, Other)
  Sender: FDA-Public Use
  Company Number: FR-GENZYME-RENA-1001499

PATIENT

DRUGS (23)
  1. PRAVASTATIN [Concomitant]
     Indication: ARTERIAL DISORDER
     Dosage: UNK
     Route: 065
  2. CALCIUM CARBONATE [Concomitant]
     Indication: RENAL FAILURE CHRONIC
     Dosage: UNK
     Route: 065
  3. LIDOCAINE [Concomitant]
     Indication: PRODUCT USED FOR UNKNOWN INDICATION
     Dosage: UNK
     Route: 065
  4. ACETAMINOPHEN [Concomitant]
     Indication: PRODUCT USED FOR UNKNOWN INDICATION
     Dosage: UNK
     Route: 065
  5. IRBESARTAN [Suspect]
     Indication: CORONARY ARTERY DISEASE
     Dosage: 300 MG, QD, THEN 150 MG/D, THEN 75 MG/D
     Route: 048
     Dates: start: 20070802, end: 20111125
  6. ASPIRIN [Concomitant]
     Indication: CORONARY ARTERY DISEASE
     Dosage: UNK
     Route: 065
     Dates: start: 20110101
  7. RENAGEL [Suspect]
     Indication: RENAL FAILURE CHRONIC
     Dosage: 800 MG, TID
     Route: 048
     Dates: start: 20101201, end: 20111125
  8. IRBESARTAN [Suspect]
     Dosage: 150 MG, QD
     Route: 048
  9. IRBESARTAN [Suspect]
     Dosage: 75 MG, QD
     Route: 048
  10. ASPIRIN [Concomitant]
     Indication: ARTERIAL DISORDER
  11. RENAGEL [Suspect]
     Indication: HYPERPHOSPHATAEMIA
     Dosage: 800 MG, TID
     Route: 048
     Dates: start: 20070802, end: 20101011
  12. RENVELA [Suspect]
     Indication: HYPERPHOSPHATAEMIA
     Dosage: 800 MG, TID
     Route: 048
     Dates: start: 20101011, end: 20101129
  13. LYRICA [Suspect]
     Indication: DIABETIC NEUROPATHY
     Dosage: UNK
     Route: 048
     Dates: start: 20071122, end: 20110905
  14. KAYEXALATE [Concomitant]
     Indication: RENAL FAILURE CHRONIC
     Dosage: UNK
     Route: 065
  15. PLAVIX [Suspect]
     Indication: CORONARY ARTERY DISEASE
     Dosage: 75 MG, QD
     Route: 048
     Dates: start: 20050101, end: 20110101
  16. TENORMIN [Concomitant]
     Indication: ARTERIAL DISORDER
  17. NOVOMIX [Concomitant]
     Indication: TYPE 2 DIABETES MELLITUS
     Dosage: UNK
     Route: 065
     Dates: start: 20110601
  18. FOLIC ACID [Concomitant]
     Indication: PRODUCT USED FOR UNKNOWN INDICATION
     Dosage: UNK
     Route: 065
  19. TENORMIN [Concomitant]
     Indication: HYPERTENSION
     Dosage: UNK
     Route: 065
  20. IRON [Concomitant]
     Indication: RENAL FAILURE CHRONIC
     Dosage: UNK
     Route: 065
  21. CLARITIN [Concomitant]
     Indication: PRODUCT USED FOR UNKNOWN INDICATION
     Dosage: UNK
     Route: 065
  22. PANTOPRAZOLE SODIUM [Suspect]
     Indication: PRODUCT USED FOR UNKNOWN INDICATION
     Dosage: 40 MG, QD
     Route: 048
     Dates: start: 20070802
  23. TRAMADOL HCL [Concomitant]
     Indication: PRODUCT USED FOR UNKNOWN INDICATION
     Dosage: UNK
     Route: 065

REACTIONS (4)
  - STAPHYLOCOCCAL SEPSIS [None]
  - SKIN ULCER [None]
  - NEUTROPENIA [None]
  - KLEBSIELLA INFECTION [None]
